FAERS Safety Report 6608489-4 (Version None)
Quarter: 2010Q1

REPORT INFORMATION
  Report Type: 
  Country: None (occurrence: None)
  Receive Date: 20100212
  Receipt Date: 20091218
  Transmission Date: 20100710
  Serious: No
  Sender: FDA-Public Use
  Company Number: 1000010889

PATIENT
  Age: 70 Year
  Sex: Female

DRUGS (5)
  1. SAVELLA [Suspect]
     Indication: FIBROMYALGIA
     Dosage: 12.5 MG (12.5 MG, 1 IN 1 D), ORAL
     Route: 048
     Dates: start: 20091216, end: 20091216
  2. SAVELLA [Suspect]
     Indication: FIBROMYALGIA
     Dosage: 25 MG (12.5 MG, 1 IN 1 D), ORAL
     Route: 048
     Dates: start: 20091217, end: 20091217
  3. CADUET [Concomitant]
  4. TOPROL XL (50 MILLIGRAM) [Concomitant]
  5. MIRAPEX (0.5 MILLIGRAM) [Concomitant]

REACTIONS (3)
  - BLOOD PRESSURE INCREASED [None]
  - FLUSHING [None]
  - NAUSEA [None]
